FAERS Safety Report 6554728-8 (Version None)
Quarter: 2010Q1

REPORT INFORMATION
  Report Type: 
  Country: None (occurrence: None)
  Receive Date: 20100127
  Receipt Date: 20100119
  Transmission Date: 20100710
  Serious: Yes (Other)
  Sender: FDA-Public Use
  Company Number: US-JNJFOC-20091008973

PATIENT
  Sex: Female
  Weight: 90.72 kg

DRUGS (8)
  1. LEVAQUIN [Suspect]
     Indication: PNEUMONIA
     Route: 048
     Dates: start: 20091011, end: 20091015
  2. TUSSIONEX [Concomitant]
     Indication: COUGH
     Route: 048
  3. SYNTHROID [Concomitant]
     Indication: THYROID DISORDER
     Route: 065
  4. ATENOLOL [Concomitant]
     Indication: BLOOD PRESSURE
     Route: 065
  5. DIOVAN [Concomitant]
     Route: 065
  6. ALEVE (CAPLET) [Concomitant]
     Route: 048
  7. VITAMIN [Concomitant]
     Route: 065
  8. MUCINEX DM [Concomitant]
     Indication: COUGH
     Route: 065

REACTIONS (13)
  - ANXIETY [None]
  - CONSTIPATION [None]
  - DRUG HYPERSENSITIVITY [None]
  - EPIGASTRIC DISCOMFORT [None]
  - FAECES DISCOLOURED [None]
  - FATIGUE [None]
  - INFLUENZA [None]
  - MOVEMENT DISORDER [None]
  - MUSCULOSKELETAL PAIN [None]
  - PAIN IN EXTREMITY [None]
  - PANIC ATTACK [None]
  - ROTATOR CUFF SYNDROME [None]
  - SUBCUTANEOUS ABSCESS [None]
